FAERS Safety Report 17841939 (Version 1)
Quarter: 2020Q2

REPORT INFORMATION
  Report Type: Report from Study
  Country: GT (occurrence: GT)
  Receive Date: 20200529
  Receipt Date: 20200529
  Transmission Date: 20200714
  Serious: Yes (Other)
  Sender: FDA-Public Use
  Company Number: NVSC2020GT148578

PATIENT
  Age: 69 Year
  Sex: Male

DRUGS (1)
  1. VYMADA [Suspect]
     Active Substance: SACUBITRIL\VALSARTAN
     Indication: HYPERTENSION
     Dosage: 1 DF, BID (ONE IN THE MORNING AND ONE IN THE AFTERNOON)
     Route: 065
     Dates: start: 20190605

REACTIONS (4)
  - Cardiac disorder [Unknown]
  - Product use in unapproved indication [Unknown]
  - Cardiomegaly [Unknown]
  - Oedema [Unknown]
